FAERS Safety Report 5578351-7 (Version None)
Quarter: 2007Q4

REPORT INFORMATION
  Report Type: 
  Country: None (occurrence: None)
  Receive Date: 20071130
  Receipt Date: 20070731
  Transmission Date: 20080405
  Serious: No
  Sender: FDA-Public Use
  Company Number: US200707002385

PATIENT
  Age: 53 Year
  Sex: Female
  Weight: 90.7 kg

DRUGS (8)
  1. BYETTA [Suspect]
     Indication: DIABETES MELLITUS
     Dosage: 10 UG, DAILY (1/D), SUBCUTANEOUS
     Route: 058
     Dates: start: 20070616, end: 20070619
  2. HUMALOG [Concomitant]
  3. AMITRIPTYLINE HCL [Concomitant]
  4. AVAPRO [Concomitant]
  5. FLUOXETINE [Concomitant]
  6. OMEPRAZOLE [Concomitant]
  7. PREMARIN (ESTROGENS CONJUGATED, MEDROGESTONE) [Concomitant]
  8. SYNTHROID [Concomitant]

REACTIONS (5)
  - DYSPNOEA [None]
  - HEADACHE [None]
  - NAUSEA [None]
  - PAIN OF SKIN [None]
  - RASH PRURITIC [None]
